FAERS Safety Report 22811884 (Version 2)
Quarter: 2023Q4

REPORT INFORMATION
  Report Type: Report from Study
  Country: US (occurrence: US)
  Receive Date: 20230811
  Receipt Date: 20231020
  Transmission Date: 20240109
  Serious: Yes (Death, Other)
  Sender: FDA-Public Use
  Company Number: US-ACADIA PHARMACEUTICALS INC.-ACA-2023-PIM-003277

PATIENT
  Sex: Female

DRUGS (11)
  1. NUPLAZID [Suspect]
     Active Substance: PIMAVANSERIN TARTRATE
     Indication: Parkinson^s disease
     Dosage: 34 MILLIGRAM, QD
     Route: 048
     Dates: start: 20230706, end: 20230717
  2. GABAPENTIN [Concomitant]
     Active Substance: GABAPENTIN
  3. FERROUS SULFATE [Concomitant]
     Active Substance: FERROUS SULFATE
  4. PRAVASTATIN [Concomitant]
     Active Substance: PRAVASTATIN
  5. MEMANTINE [Concomitant]
     Active Substance: MEMANTINE
  6. TRIMETHOPRIM [Concomitant]
     Active Substance: TRIMETHOPRIM
  7. MIDODRINE [Concomitant]
     Active Substance: MIDODRINE
  8. QUETIAPINE [Concomitant]
     Active Substance: QUETIAPINE
  9. HALOPERIDOL [Concomitant]
     Active Substance: HALOPERIDOL
  10. FOLIC ACID [Concomitant]
     Active Substance: FOLIC ACID
  11. RESTASIS [Concomitant]
     Active Substance: CYCLOSPORINE

REACTIONS (1)
  - Parkinson^s disease [Recovered/Resolved]
